FAERS Safety Report 11202153 (Version 7)
Quarter: 2016Q4

REPORT INFORMATION
  Report Type: Spontaneous
  Country: JP (occurrence: JP)
  Receive Date: 20150619
  Receipt Date: 20161221
  Transmission Date: 20170206
  Serious: Yes (Life-Threatening, Hospitalization, Congenital Anomaly, Other)
  Sender: FDA-Public Use
  Company Number: PHJP2015JP007391

PATIENT
  Sex: Female
  Weight: 2.85 kg

DRUGS (1)
  1. CO-DIOVAN [Suspect]
     Active Substance: HYDROCHLOROTHIAZIDE\VALSARTAN
     Indication: FOETAL EXPOSURE DURING PREGNANCY
     Dosage: MATERNAL DOSE: 1 DF, QD
     Route: 064

REACTIONS (17)
  - Tricuspid valve incompetence [Recovered/Resolved]
  - Neonatal respiratory distress syndrome [Recovering/Resolving]
  - Polyuria [Not Recovered/Not Resolved]
  - Jaundice neonatal [Recovering/Resolving]
  - Renal hypoplasia [Unknown]
  - Renal disorder [Not Recovered/Not Resolved]
  - Right ventricular failure [Recovered/Resolved]
  - Pleural effusion [Recovered/Resolved]
  - Oedema [Recovered/Resolved]
  - Foetal exposure during pregnancy [Unknown]
  - Ductus arteriosus stenosis foetal [Recovered/Resolved]
  - Bradycardia [Recovered/Resolved]
  - Renal dysplasia [Not Recovered/Not Resolved]
  - Nephrogenic diabetes insipidus [Not Recovered/Not Resolved]
  - Hydrops foetalis [Recovered/Resolved]
  - Ascites [Recovered/Resolved]
  - Premature baby [Unknown]

NARRATIVE: CASE EVENT DATE: 20150418
